FAERS Safety Report 25621108 (Version 4)
Quarter: 2025Q3

REPORT INFORMATION
  Report Type: Spontaneous
  Country: US (occurrence: US)
  Receive Date: 20250730
  Receipt Date: 20250820
  Transmission Date: 20251021
  Serious: Yes (Hospitalization, Other)
  Sender: UROGEN PHARMA
  Company Number: US-UROGEN PHARMA LTD.-2025-UGN-000136

PATIENT

DRUGS (2)
  1. JELMYTO [Suspect]
     Active Substance: MITOMYCIN
     Indication: Transitional cell cancer of the renal pelvis and ureter
     Dosage: 28 MILLIGRAM, ONCE A WEEK (INSTILLATION)
     Dates: start: 20250716, end: 20250716
  2. JELMYTO [Suspect]
     Active Substance: MITOMYCIN
     Dosage: 28 MILLIGRAM, ONCE A WEEK (INSTILLATION)
     Dates: start: 20250723, end: 20250723

REACTIONS (5)
  - Anuria [Recovered/Resolved]
  - Pyelonephritis [Unknown]
  - Urinary tract infection [Unknown]
  - Skin exfoliation [Unknown]
  - Fatigue [Unknown]

NARRATIVE: CASE EVENT DATE: 20250716
